FAERS Safety Report 5761962-3 (Version None)
Quarter: 2008Q2

REPORT INFORMATION
  Report Type: 
  Country: None (occurrence: None)
  Receive Date: 20080603
  Receipt Date: 20080521
  Transmission Date: 20081010
  Serious: Yes (Hospitalization)
  Sender: FDA-Public Use
  Company Number: 2008AL005599

PATIENT
  Age: 15 Month
  Sex: Male

DRUGS (5)
  1. FEVERALL (ACETAMINOPHEN RECTAL SUPPOSITORIES) 120 MG (ALPHARMA) (FEVER [Suspect]
     Indication: INFLUENZA
     Dosage: SUPPOSITORY
     Route: 054
  2. FEVERALL (ACETAMINOPHEN RECTAL SUPPOSITORIES) 120 MG (ALPHARMA) (FEVER [Suspect]
     Indication: PYREXIA
     Dosage: SUPPOSITORY
     Route: 054
  3. VALPROIC ACID [Concomitant]
  4. TOPIRAMATE [Concomitant]
  5. CLOBAZAM [Concomitant]

REACTIONS (7)
  - ALANINE AMINOTRANSFERASE INCREASED [None]
  - ASPARTATE AMINOTRANSFERASE INCREASED [None]
  - COAGULATION TIME PROLONGED [None]
  - CONVULSION [None]
  - ELECTROENCEPHALOGRAM ABNORMAL [None]
  - EPILEPSY [None]
  - STATUS EPILEPTICUS [None]
